FAERS Safety Report 9280008 (Version 1)
Quarter: 2013Q2

REPORT INFORMATION
  Report Type: Spontaneous
  Country: US (occurrence: None)
  Receive Date: 20130506
  Receipt Date: 20130506
  Transmission Date: 20140414
  Serious: Yes (Other)
  Sender: FDA-Public Use
  Company Number: None

PATIENT
  Age: 59 Year
  Sex: Male

DRUGS (1)
  1. SUTENT [Suspect]
     Dosage: 12.5  DAILY FOR 14 DAYS  ORAL,BID.AND 14 DAYS OFF.
     Route: 048
     Dates: start: 200809, end: 201304

REACTIONS (1)
  - Ammonia increased [None]
